FAERS Safety Report 13729067 (Version 1)
Quarter: 2017Q3

REPORT INFORMATION
  Report Type: Spontaneous
  Country: US (occurrence: US)
  Receive Date: 20170707
  Receipt Date: 20170707
  Transmission Date: 20171127
  Serious: No
  Sender: FDA-Public Use
  Company Number: US-JNJFOC-20160427408

PATIENT
  Sex: Male

DRUGS (10)
  1. RISPERDAL [Suspect]
     Active Substance: RISPERIDONE
     Indication: BIPOLAR DISORDER
     Dosage: VARYING DOSE OF 3.0 MG TO 4.0 MG
     Route: 048
     Dates: start: 200512, end: 201501
  2. RISPERDAL [Suspect]
     Active Substance: RISPERIDONE
     Indication: SCHIZOPHRENIA
     Dosage: VARYING DOSE OF 1.0 MG, 2.0 MG AND 3.0 MG
     Route: 048
     Dates: start: 200512, end: 200601
  3. INVEGA [Suspect]
     Active Substance: PALIPERIDONE
     Indication: SCHIZOPHRENIA
     Dosage: VARYING DOSE OF 4.0 MG, 6.0 MG AND 9.0 MG
     Route: 048
     Dates: start: 200811, end: 201004
  4. INVEGA [Suspect]
     Active Substance: PALIPERIDONE
     Indication: BIPOLAR DISORDER
     Dosage: VARYING DOSE OF 6.0 MG AND 9.0 MG
     Route: 048
     Dates: start: 200904, end: 201004
  5. RISPERDAL [Suspect]
     Active Substance: RISPERIDONE
     Indication: BIPOLAR DISORDER
     Route: 048
     Dates: start: 200802, end: 2014
  6. RISPERDAL [Suspect]
     Active Substance: RISPERIDONE
     Indication: SCHIZOPHRENIA
     Route: 048
     Dates: start: 200802, end: 2014
  7. RISPERDAL [Suspect]
     Active Substance: RISPERIDONE
     Indication: SCHIZOPHRENIA
     Dosage: VARYING DOSE OF 3.0 MG TO 4.0 MG
     Route: 048
     Dates: start: 200512, end: 201501
  8. RISPERDAL [Suspect]
     Active Substance: RISPERIDONE
     Indication: BIPOLAR DISORDER
     Dosage: VARYING DOSE OF 1.0 MG, 2.0 MG AND 3.0 MG
     Route: 048
     Dates: start: 200512, end: 200601
  9. INVEGA [Suspect]
     Active Substance: PALIPERIDONE
     Indication: BIPOLAR DISORDER
     Dosage: VARYING DOSE OF 4.0 MG, 6.0 MG AND 9.0 MG
     Route: 048
     Dates: start: 200811, end: 201004
  10. INVEGA [Suspect]
     Active Substance: PALIPERIDONE
     Indication: SCHIZOPHRENIA
     Dosage: VARYING DOSE OF 6.0 MG AND 9.0 MG
     Route: 048
     Dates: start: 200904, end: 201004

REACTIONS (4)
  - Extrapyramidal disorder [Unknown]
  - Galactorrhoea [Unknown]
  - Gynaecomastia [Unknown]
  - Abnormal weight gain [Unknown]

NARRATIVE: CASE EVENT DATE: 2009
